FAERS Safety Report 11533913 (Version 2)
Quarter: 2015Q4

REPORT INFORMATION
  Report Type: Report from Study
  Country: US (occurrence: US)
  Receive Date: 20150922
  Receipt Date: 20151021
  Transmission Date: 20160304
  Serious: No
  Sender: FDA-Public Use
  Company Number: US-AMGEN-USASP2015095104

PATIENT
  Age: 66 Year
  Sex: Female

DRUGS (1)
  1. ENBREL [Suspect]
     Active Substance: ETANERCEPT
     Indication: PRODUCT USED FOR UNKNOWN INDICATION
     Dosage: UNK UNK, QWK
     Route: 065
     Dates: end: 20150907

REACTIONS (10)
  - Drug administration error [Unknown]
  - Needle issue [Unknown]
  - Fear of injection [Unknown]
  - Injection site erythema [Unknown]
  - Injection site pain [Unknown]
  - Injection site bruising [Unknown]
  - Arthritis [Unknown]
  - Grip strength decreased [Unknown]
  - Injection site extravasation [Unknown]
  - Feeling cold [Unknown]

NARRATIVE: CASE EVENT DATE: 2015
